FAERS Safety Report 22115324 (Version 1)
Quarter: 2023Q1

REPORT INFORMATION
  Report Type: Report from Study
  Country: AR (occurrence: AR)
  Receive Date: 20230320
  Receipt Date: 20230320
  Transmission Date: 20230418
  Serious: Yes (Life-Threatening, Hospitalization)
  Sender: FDA-Public Use
  Company Number: AR-ELI_LILLY_AND_COMPANY-AR202303007193

PATIENT
  Age: 73 Year
  Sex: Male
  Weight: 80 kg

DRUGS (11)
  1. ABEMACICLIB [Suspect]
     Active Substance: ABEMACICLIB
     Indication: Prostate cancer
     Dosage: 200 MG, BID
     Route: 048
     Dates: start: 20230217, end: 20230309
  2. ABIRATERONE [Suspect]
     Active Substance: ABIRATERONE
     Indication: Prostate cancer
     Dosage: 1000 MG, DAILY
     Route: 048
     Dates: start: 20230217, end: 20230313
  3. PREDNISONE [Suspect]
     Active Substance: PREDNISONE
     Indication: Prostate cancer
     Dosage: 5 MG, DAILY
     Route: 048
     Dates: start: 20230217
  4. CILOSTAZOL [Concomitant]
     Active Substance: CILOSTAZOL
     Indication: Peripheral vascular disorder
     Dosage: UNK, UNKNOWN
     Route: 065
     Dates: start: 202205
  5. PRASUGREL [Concomitant]
     Active Substance: PRASUGREL
     Indication: Peripheral vascular disorder
     Dosage: UNK, UNKNOWN
     Route: 065
     Dates: start: 202205
  6. ASPIRIN [Concomitant]
     Active Substance: ASPIRIN
     Indication: Peripheral vascular disorder
     Dosage: 100 MG, UNKNOWN
     Route: 065
     Dates: start: 202205
  7. ATORVASTATIN [Concomitant]
     Active Substance: ATORVASTATIN
     Indication: Dyslipidaemia
     Dosage: 40 MG, UNKNOWN
     Route: 065
     Dates: start: 202205
  8. AMLODIPINE BESYLATE [Concomitant]
     Active Substance: AMLODIPINE BESYLATE
     Indication: Hypertension
     Dosage: 5 MG, UNKNOWN
     Route: 065
     Dates: start: 2020
  9. VALSARTAN [Concomitant]
     Active Substance: VALSARTAN
     Indication: Hypertension
     Dosage: 320 MG, UNKNOWN
     Route: 065
     Dates: start: 2020
  10. OMEPRAZOLE [Concomitant]
     Active Substance: OMEPRAZOLE
     Indication: Prophylaxis
     Dosage: 20 MG, UNKNOWN
     Route: 065
     Dates: start: 2022
  11. LOPERAMIDE [Concomitant]
     Active Substance: LOPERAMIDE
     Indication: Diarrhoea
     Dosage: 4 MG, UNKNOWN
     Route: 065
     Dates: start: 20230306

REACTIONS (1)
  - Acute kidney injury [Not Recovered/Not Resolved]

NARRATIVE: CASE EVENT DATE: 20230313
